FAERS Safety Report 10250393 (Version 2)
Quarter: 2014Q2

REPORT INFORMATION
  Report Type: Spontaneous
  Country: US (occurrence: None)
  Receive Date: 20140618
  Receipt Date: 20140620
  Transmission Date: 20141212
  Serious: Yes (Other)
  Sender: FDA-Public Use
  Company Number: ADR-2014-01030

PATIENT
  Age: 85 Year
  Sex: Female

DRUGS (1)
  1. LIORESAL [Suspect]
     Indication: MUSCLE SPASTICITY

REACTIONS (3)
  - Drug effect incomplete [None]
  - Muscle spasticity [None]
  - Cardiac disorder [None]
